FAERS Safety Report 8209686-7 (Version None)
Quarter: 2012Q1

REPORT INFORMATION
  Report Type: 
  Country: None (occurrence: None)
  Receive Date: 20120314
  Receipt Date: 20120302
  Transmission Date: 20120608
  Serious: Yes (Hospitalization, Other)
  Sender: FDA-Public Use
  Company Number: US-BRISTOL-MYERS SQUIBB COMPANY-16347528

PATIENT
  Age: 79 Year
  Sex: Female

DRUGS (1)
  1. ORENCIA [Suspect]
     Dosage: LAST DOSE ON 01MAR12
     Dates: start: 20050101, end: 20120301

REACTIONS (2)
  - CEREBROVASCULAR ACCIDENT [None]
  - AMYOTROPHIC LATERAL SCLEROSIS [None]
